FAERS Safety Report 10171059 (Version 2)
Quarter: 2014Q2

REPORT INFORMATION
  Report Type: Spontaneous
  Country: CA (occurrence: CA)
  Receive Date: 20140514
  Receipt Date: 20140604
  Transmission Date: 20141212
  Serious: Yes (Other)
  Sender: FDA-Public Use
  Company Number: CA-AMGEN-CANSP2014033867

PATIENT
  Age: 64 Year
  Sex: Female
  Weight: 66.67 kg

DRUGS (2)
  1. PROLIA [Suspect]
     Indication: OSTEOPOROSIS POSTMENOPAUSAL
     Dosage: 60 MG/ML, UNK
     Route: 058
     Dates: start: 20130328
  2. PROLIA [Suspect]
     Indication: OSTEOPOROSIS PROPHYLAXIS

REACTIONS (9)
  - Foot fracture [Unknown]
  - Skin mass [Unknown]
  - Joint crepitation [Recovered/Resolved]
  - Pain [Recovered/Resolved]
  - Joint swelling [Recovered/Resolved]
  - Arthralgia [Recovered/Resolved]
  - Pain in extremity [Recovered/Resolved]
  - Discomfort [Unknown]
  - Exostosis [Unknown]
